FAERS Safety Report 22356585 (Version 1)
Quarter: 2023Q2

REPORT INFORMATION
  Report Type: Spontaneous
  Country: US (occurrence: None)
  Receive Date: 20230519
  Receipt Date: 20230519
  Transmission Date: 20230721
  Serious: Yes (Death)
  Sender: FDA-Public Use
  Company Number: None

PATIENT
  Age: 7 Year
  Sex: Male
  Weight: 21.5 kg

DRUGS (7)
  1. IXAZOMIB [Suspect]
     Active Substance: IXAZOMIB
     Indication: B-cell type acute leukaemia
     Dosage: OTHER QUANTITY : 1.70MG;?OTHER FREQUENCY : OTHER, DAYS 1,4,8,;?
     Route: 048
     Dates: start: 20230321, end: 20230401
  2. VINCRISTINE [Suspect]
     Active Substance: VINCRISTINE
     Indication: B-cell type acute leukaemia
     Dosage: OTHER QUANTITY : 1.26 MG;?FREQUENCY : WEEKLY;?
     Dates: start: 20230321, end: 20230404
  3. DEXAMETHASONE [Concomitant]
     Active Substance: DEXAMETHASONE
  4. CALASPARGASES [Concomitant]
  5. DOXORUBICIN [Concomitant]
     Active Substance: DOXORUBICIN
  6. METHOTREXATE [Concomitant]
     Active Substance: METHOTREXATE
  7. VANCOMYCIN [Concomitant]
     Active Substance: VANCOMYCIN

REACTIONS (7)
  - Enterocolitis infectious [None]
  - Neutropenia [None]
  - Septic shock [None]
  - Staphylococcus test positive [None]
  - Acute respiratory distress syndrome [None]
  - Ascites [None]
  - Critical illness [None]

NARRATIVE: CASE EVENT DATE: 20230518
